FAERS Safety Report 8168720-3 (Version None)
Quarter: 2012Q1

REPORT INFORMATION
  Report Type: 
  Country: None (occurrence: None)
  Receive Date: 20120222
  Receipt Date: 20120207
  Transmission Date: 20120608
  Serious: Yes (Other)
  Sender: FDA-Public Use
  Company Number: DEXA20120002

PATIENT
  Age: 53 Year
  Sex: Female

DRUGS (8)
  1. HYDROCORTONE [Suspect]
     Indication: ACUTE LYMPHOCYTIC LEUKAEMIA
     Dosage: DAYS 1, 8 + 15, INTRATHECAL
     Route: 037
  2. CYCLOPHOSPHAMIDE [Suspect]
     Indication: ACUTE LYMPHOCYTIC LEUKAEMIA
     Dosage: 300 MG/M2 FOR 3 DAYS
  3. DOXORUBICIN HCL [Suspect]
     Indication: ACUTE LYMPHOCYTIC LEUKAEMIA
     Dosage: 50 MG/M2 ON DAY 4
  4. METHOTREXATE [Suspect]
     Indication: ACUTE LYMPHOCYTIC LEUKAEMIA
     Dosage: DAYS 1, 8 + 15, INTRATHECAL
     Route: 037
  5. DEXAMETHASONE [Suspect]
     Indication: ACUTE LYMPHOCYTIC LEUKAEMIA
     Dosage: 40 MG/DAY FROM DAYS 11-14
  6. IMATINIB MESYLATE [Suspect]
     Indication: ACUTE LYMPHOCYTIC LEUKAEMIA
     Dosage: 800 MG/DAY ON DAYS 1-15, ORAL
     Route: 048
  7. CYTARABINE [Suspect]
     Indication: ACUTE LYMPHOCYTIC LEUKAEMIA
     Dosage: DAYS 1, 8 + 14, INTRATHECAL
     Route: 037
  8. VINCRISTINE [Suspect]
     Indication: ACUTE LYMPHOCYTIC LEUKAEMIA
     Dosage: 2 MG/DAY ON DAY 4 AND 11

REACTIONS (9)
  - PARONYCHIA [None]
  - LUNG NEOPLASM [None]
  - DIARRHOEA [None]
  - FEBRILE NEUTROPENIA [None]
  - RASH [None]
  - SCAR [None]
  - MYALGIA [None]
  - SUBCUTANEOUS NODULE [None]
  - SYSTEMIC MYCOSIS [None]
